FAERS Safety Report 7011206-X (Version None)
Quarter: 2010Q3

REPORT INFORMATION
  Report Type: 
  Country: None (occurrence: None)
  Receive Date: 20100922
  Receipt Date: 20100922
  Transmission Date: 20110219
  Serious: Yes (Disabling, Other)
  Sender: FDA-Public Use
  Company Number: None

PATIENT
  Sex: Female
  Weight: 70.3075 kg

DRUGS (1)
  1. MIRENA [Suspect]

REACTIONS (6)
  - ACNE [None]
  - LIBIDO DECREASED [None]
  - MOOD SWINGS [None]
  - MUSCLE SPASMS [None]
  - URINARY TRACT INFECTION [None]
  - WEIGHT INCREASED [None]
